FAERS Safety Report 4869292-9 (Version None)
Quarter: 2005Q4

REPORT INFORMATION
  Report Type: 
  Country: None (occurrence: None)
  Receive Date: 20051230
  Receipt Date: 20051129
  Transmission Date: 20060501
  Serious: Yes (Death, Other)
  Sender: FDA-Public Use
  Company Number: IT-AVENTIS-200520540GDDC

PATIENT
  Age: 75 Year
  Sex: Male

DRUGS (5)
  1. RIFINAH [Suspect]
     Indication: TUBERCULOSIS
     Dates: start: 20050725, end: 20051106
  2. ISONIAZID [Concomitant]
     Dates: start: 20050725, end: 20051106
  3. ENALAPRIL [Concomitant]
     Route: 048
  4. FUROSEMIDE [Concomitant]
     Route: 048
  5. DIGOXIN [Concomitant]
     Route: 048

REACTIONS (6)
  - ANAEMIA [None]
  - DEATH [None]
  - GENERALISED OEDEMA [None]
  - HYDROTHORAX [None]
  - RENAL FAILURE ACUTE [None]
  - THROMBOCYTOPENIA [None]
